FAERS Safety Report 5149696-X (Version None)
Quarter: 2006Q4

REPORT INFORMATION
  Report Type: 
  Country: None (occurrence: None)
  Receive Date: 20061113
  Receipt Date: 20061006
  Transmission Date: 20070319
  Serious: Yes (Other)
  Sender: FDA-Public Use
  Company Number: JP-ROCHE-466941

PATIENT
  Age: 83 Year
  Sex: Male

DRUGS (6)
  1. TAMIFLU [Suspect]
     Route: 048
     Dates: start: 20060109, end: 20060110
  2. TAMIFLU [Suspect]
     Route: 048
     Dates: start: 20060111, end: 20060111
  3. THEOPHYLLINE [Suspect]
     Route: 065
  4. METHYLPREDNISOLONE SODIUM SUCCINATE [Concomitant]
     Dosage: DRUG NAME REPORTED AS PRIDOL.
     Route: 041
     Dates: start: 20060109, end: 20060110
  5. AMINOPHYLLINE [Concomitant]
     Route: 041
     Dates: start: 20060109, end: 20060110
  6. SOLDEM [Concomitant]

REACTIONS (3)
  - DELIRIUM [None]
  - DEPRESSED LEVEL OF CONSCIOUSNESS [None]
  - RENAL IMPAIRMENT [None]
